FAERS Safety Report 10632440 (Version 3)
Quarter: 2014Q4

REPORT INFORMATION
  Report Type: Spontaneous
  Country: US (occurrence: US)
  Receive Date: 20141205
  Receipt Date: 20141222
  Transmission Date: 20150529
  Serious: No
  Sender: FDA-Public Use
  Company Number: US-BRISTOL-MYERS SQUIBB COMPANY-21486170

PATIENT
  Sex: Female

DRUGS (1)
  1. SPRYCEL [Suspect]
     Active Substance: DASATINIB
     Dosage: FOR: PILLS
     Route: 048
     Dates: start: 20141011

REACTIONS (4)
  - Alopecia [Unknown]
  - Myalgia [Not Recovered/Not Resolved]
  - Fluid retention [Unknown]
  - Fatigue [Unknown]
